FAERS Safety Report 6376644-7 (Version None)
Quarter: 2009Q3

REPORT INFORMATION
  Report Type: 
  Country: None (occurrence: None)
  Receive Date: 20090925
  Receipt Date: 20090921
  Transmission Date: 20100115
  Serious: Yes (Death, Other)
  Sender: FDA-Public Use
  Company Number: PHEH2009US04428

PATIENT
  Sex: Female
  Weight: 63 kg

DRUGS (6)
  1. EXJADE [Suspect]
     Indication: REFRACTORY ANAEMIA
     Dosage: UNK
     Route: 048
     Dates: start: 20081203, end: 20090401
  2. EXJADE [Suspect]
     Indication: IRON OVERLOAD
  3. TAXOTERE [Concomitant]
     Indication: BREAST CANCER METASTATIC
     Dosage: UNK
     Route: 042
     Dates: start: 20081115, end: 20090211
  4. AVASTIN [Concomitant]
     Indication: BREAST CANCER METASTATIC
     Dosage: UNK
     Route: 042
     Dates: start: 20081115, end: 20090311
  5. ACETAMINOPHEN AND HYDROCODONE BITARTRATE [Concomitant]
     Indication: BREAST CANCER METASTATIC
     Dosage: UNK
     Route: 048
     Dates: start: 20081115
  6. METOPROLOL [Concomitant]
     Indication: HYPERTENSION
     Dosage: UNK
     Route: 048
     Dates: start: 20081119

REACTIONS (4)
  - EAR DISCOMFORT [None]
  - EYE DISORDER [None]
  - FACIAL PALSY [None]
  - MALIGNANT NEOPLASM PROGRESSION [None]
